FAERS Safety Report 7134009-4 (Version None)
Quarter: 2010Q4

REPORT INFORMATION
  Report Type: 
  Country: None (occurrence: None)
  Receive Date: 20101203
  Receipt Date: 20101119
  Transmission Date: 20110411
  Serious: Yes (Other)
  Sender: FDA-Public Use
  Company Number: NL-SANOFI-AVENTIS-2010SA070447

PATIENT

DRUGS (2)
  1. OXALIPLATIN [Suspect]
  2. XELODA [Suspect]
     Route: 048

REACTIONS (1)
  - ANGINA PECTORIS [None]
